FAERS Safety Report 8037587-6 (Version None)
Quarter: 2012Q1

REPORT INFORMATION
  Report Type: 
  Country: None (occurrence: None)
  Receive Date: 20120111
  Receipt Date: 20120103
  Transmission Date: 20120608
  Serious: Yes (Hospitalization)
  Sender: FDA-Public Use
  Company Number: US-BAYER-2011-053417

PATIENT
  Age: 17 Year
  Sex: Female
  Weight: 101.13 kg

DRUGS (6)
  1. PULMICORT [Concomitant]
     Indication: ASTHMA
     Dosage: UNK UNK, PRN
     Route: 048
  2. OTC THYROID MED [Concomitant]
     Dosage: UNK UNK, QD
     Route: 048
  3. YASMIN [Suspect]
     Indication: MENSTRUAL CYCLE MANAGEMENT
     Dosage: UNK
     Dates: start: 20070731, end: 20080601
  4. DROSPIRENONE AND ETHINYL ESTRADIOL [Suspect]
     Indication: MENSTRUAL CYCLE MANAGEMENT
     Dosage: UNK
     Dates: start: 20080731, end: 20080804
  5. ALBUTEROL INHALER [Concomitant]
     Indication: ASTHMA
     Dosage: UNK UNK, PRN
     Route: 048
  6. ASPIRIN [Concomitant]
     Indication: MIGRAINE

REACTIONS (3)
  - ABDOMINAL PAIN [None]
  - BACK PAIN [None]
  - CHOLECYSTITIS CHRONIC [None]
